FAERS Safety Report 5682123-2 (Version None)
Quarter: 2008Q1

REPORT INFORMATION
  Report Type: 
  Country: None (occurrence: None)
  Receive Date: 20080327
  Receipt Date: 20080317
  Transmission Date: 20080703
  Serious: Yes (Other)
  Sender: FDA-Public Use
  Company Number: PT-RANBAXY-2008RR-13877

PATIENT

DRUGS (3)
  1. IBUPROFEN [Suspect]
     Dosage: 200 MG, UNK
  2. ACETAMINOPHEN [Suspect]
     Dosage: 250 MG, UNK
  3. ACETAMINOPHEN [Suspect]
     Dosage: 750 MG, UNK
     Route: 048

REACTIONS (1)
  - DRUG HYPERSENSITIVITY [None]
